FAERS Safety Report 5810310-9 (Version None)
Quarter: 2008Q3

REPORT INFORMATION
  Report Type: 
  Country: None (occurrence: None)
  Receive Date: 20080715
  Receipt Date: 20080324
  Transmission Date: 20090109
  Serious: No
  Sender: FDA-Public Use
  Company Number: A0716895A

PATIENT
  Sex: Female

DRUGS (4)
  1. IMITREX [Suspect]
     Indication: MIGRAINE
     Dosage: 50MG SINGLE DOSE
     Route: 048
     Dates: start: 20010101
  2. GUAIFENESIN [Concomitant]
  3. FLONASE [Concomitant]
  4. ASTELIN [Concomitant]

REACTIONS (1)
  - DRUG INEFFECTIVE [None]
